FAERS Safety Report 11249651 (Version 1)
Quarter: 2015Q3

REPORT INFORMATION
  Report Type: Spontaneous
  Country: US (occurrence: US)
  Receive Date: 20150708
  Receipt Date: 20150708
  Transmission Date: 20151125
  Serious: No
  Sender: FDA-Public Use
  Company Number: US-ELI_LILLY_AND_COMPANY-US200910000234

PATIENT
  Age: 84 Year
  Sex: Female

DRUGS (4)
  1. GEMZAR [Suspect]
     Active Substance: GEMCITABINE HYDROCHLORIDE
     Indication: BLADDER CANCER
     Dosage: UNK, UNK
     Dates: start: 20090717
  2. ANTIHYPERTENSIVES [Concomitant]
     Active Substance: UNSPECIFIED INGREDIENT
     Indication: BLOOD PRESSURE MEASUREMENT
  3. CARBOPLATIN. [Concomitant]
     Active Substance: CARBOPLATIN
     Indication: BLADDER CANCER
  4. ARICEPT [Concomitant]
     Active Substance: DONEPEZIL HYDROCHLORIDE
     Indication: COGNITIVE DISORDER

REACTIONS (4)
  - Diarrhoea [Recovered/Resolved]
  - Memory impairment [Not Recovered/Not Resolved]
  - Hallucination [Not Recovered/Not Resolved]
  - White blood cell count decreased [Recovered/Resolved]

NARRATIVE: CASE EVENT DATE: 2009
